FAERS Safety Report 9733196 (Version 4)
Quarter: 2014Q3

REPORT INFORMATION
  Report Type: Report from Study
  Country: DE (occurrence: DE)
  Receive Date: 20131205
  Receipt Date: 20140711
  Transmission Date: 20150326
  Serious: Yes (Other)
  Sender: FDA-Public Use
  Company Number: PHHO2013DE015485

PATIENT

DRUGS (31)
  1. TACROLIMUS. [Suspect]
     Active Substance: TACROLIMUS
     Dosage: 1.4 MG, BID
     Dates: start: 20130206, end: 20130606
  2. CYCLOSPORINE. [Concomitant]
     Active Substance: CYCLOSPORINE
     Dosage: 92 MG, BID
     Dates: start: 20121105, end: 20121105
  3. TACROLIMUS. [Suspect]
     Active Substance: TACROLIMUS
     Dosage: 1.6 MG, BID
     Dates: start: 20121129, end: 20130204
  4. TACROLIMUS. [Suspect]
     Active Substance: TACROLIMUS
     Dosage: 1.2 MG, BID
     Dates: start: 20130723
  5. CYCLOSPORINE. [Concomitant]
     Active Substance: CYCLOSPORINE
     Dosage: 69 MG, BID
     Dates: start: 20121026, end: 20121026
  6. CYCLOSPORINE. [Concomitant]
     Active Substance: CYCLOSPORINE
     Dosage: 78 MG, BID
     Dates: start: 20121031, end: 20121031
  7. CYCLOSPORINE. [Concomitant]
     Active Substance: CYCLOSPORINE
     Dosage: 100 MG, BID
     Dates: start: 20121106, end: 20121106
  8. CYCLOSPORINE. [Concomitant]
     Active Substance: CYCLOSPORINE
     Dosage: 140 MG, BID
     Dates: start: 20121110, end: 20121122
  9. TACROLIMUS. [Suspect]
     Active Substance: TACROLIMUS
     Dosage: 1.2 MG, BID
     Dates: start: 20121124, end: 20121127
  10. URSODESOXYCHOLIC ACID [Concomitant]
     Indication: SUPPORTIVE CARE
     Dosage: 75 MG, BID
  11. BASILIXIMAB [Concomitant]
     Active Substance: BASILIXIMAB
     Indication: IMMUNOSUPPRESSION
     Dosage: UNK
     Dates: start: 20121023, end: 20121107
  12. CYCLOSPORINE. [Concomitant]
     Active Substance: CYCLOSPORINE
     Dosage: 130 MG, BID
     Dates: start: 20121109, end: 20121109
  13. TACROLIMUS. [Suspect]
     Active Substance: TACROLIMUS
     Dosage: 1.1 MG, BID
     Dates: start: 20130712, end: 20130712
  14. TACROLIMUS. [Suspect]
     Active Substance: TACROLIMUS
     Dosage: 1 MG, BID
     Dates: start: 20130713, end: 20130721
  15. VITAMIN D [Concomitant]
     Active Substance: CHOLECALCIFEROL
     Indication: PROPHYLAXIS
     Dosage: 1000E
  16. PREDNISON [Concomitant]
     Active Substance: PREDNISONE
     Indication: IMMUNOSUPPRESSION
     Dosage: 1 MG, QD
  17. CYCLOSPORINE. [Concomitant]
     Active Substance: CYCLOSPORINE
     Dosage: 110 MG, BID
     Dates: start: 20121107, end: 20121107
  18. CYCLOSPORINE. [Concomitant]
     Active Substance: CYCLOSPORINE
     Dosage: 70 MG, BID
     Dates: start: 20121123, end: 20121123
  19. TACROLIMUS. [Suspect]
     Active Substance: TACROLIMUS
     Dosage: 1.4 MG, BID
     Dates: start: 20121128, end: 20121128
  20. CYCLOSPORINE. [Concomitant]
     Active Substance: CYCLOSPORINE
     Dosage: 84 MG, BID
     Dates: start: 20121101, end: 20121104
  21. TACROLIMUS. [Suspect]
     Active Substance: TACROLIMUS
     Indication: IMMUNOSUPPRESSION
     Dosage: 0.6 MG, BID
     Dates: start: 20121123, end: 20121123
  22. TACROLIMUS. [Suspect]
     Active Substance: TACROLIMUS
     Dosage: 1.5 MG, BID
     Dates: start: 20130205, end: 20130205
  23. ASPIRINE [Concomitant]
     Active Substance: ASPIRIN
     Indication: ANTICOAGULANT THERAPY
     Dosage: 35 MG, TIW
  24. CYCLOSPORINE. [Concomitant]
     Active Substance: CYCLOSPORINE
     Indication: IMMUNOSUPPRESSION
     Dosage: 66 MG, BID
     Dates: start: 20121018, end: 20121025
  25. CYCLOSPORINE. [Concomitant]
     Active Substance: CYCLOSPORINE
     Dosage: 120 MG, BID
     Dates: start: 20121108, end: 20121108
  26. CERTICAN [Suspect]
     Active Substance: EVEROLIMUS
     Indication: LIVER TRANSPLANT
     Dosage: 0.5 MG, BID
     Route: 048
     Dates: start: 20121024, end: 20131126
  27. TACROLIMUS. [Suspect]
     Active Substance: TACROLIMUS
     Dosage: 1.3 MG, BID
     Dates: start: 20130607, end: 20130607
  28. TACROLIMUS. [Suspect]
     Active Substance: TACROLIMUS
     Dosage: 1.2 MG, BID
     Dates: start: 20130608, end: 20130611
  29. TACROLIMUS. [Suspect]
     Active Substance: TACROLIMUS
     Dosage: 1.1 MG, BID
     Dates: start: 20130722, end: 20130722
  30. MAGNESIUM DIASPORAL [Concomitant]
     Dosage: 2 ML, BID
  31. CYCLOSPORINE. [Concomitant]
     Active Substance: CYCLOSPORINE
     Dosage: 72 MG, BID
     Dates: start: 20121027, end: 20121030

REACTIONS (1)
  - Hepatic steatosis [Not Recovered/Not Resolved]

NARRATIVE: CASE EVENT DATE: 20131126
